FAERS Safety Report 12538860 (Version 1)
Quarter: 2016Q3

REPORT INFORMATION
  Report Type: Spontaneous
  Country: CA (occurrence: None)
  Receive Date: 20160706
  Receipt Date: 20160706
  Transmission Date: 20161109
  Serious: Yes (Other)
  Sender: FDA-Public Use
  Company Number: B16-0039-AE

PATIENT

DRUGS (2)
  1. URSODEOXYCHOLIC ACID (URSODEOXYCHOLIC ACID) [Suspect]
     Active Substance: URSODIOL
     Indication: CHOLANGITIS
  2. TRIGLIDE [Suspect]
     Active Substance: FENOFIBRATE
     Indication: CHOLANGITIS
     Route: 048

REACTIONS (3)
  - Hepatitis [None]
  - Hepatic cirrhosis [None]
  - Blood creatinine increased [None]
